FAERS Safety Report 24677829 (Version 2)
Quarter: 2025Q3

REPORT INFORMATION
  Report Type: Spontaneous
  Country: EU (occurrence: EU)
  Receive Date: 20241129
  Receipt Date: 20250809
  Transmission Date: 20251020
  Serious: Yes (Hospitalization, Other)
  Sender: ALEXION PHARMACEUTICALS
  Company Number: EU-SA-2024SA343686

PATIENT
  Age: 3 Day
  Sex: Male
  Weight: 3.84 kg

DRUGS (1)
  1. BEYFORTUS [Suspect]
     Active Substance: NIRSEVIMAB-ALIP
     Route: 065
     Dates: start: 20241116, end: 20241116

REACTIONS (8)
  - Cyanosis [Unknown]
  - Fatigue [Unknown]
  - Nasopharyngitis [Unknown]
  - Seizure [Unknown]
  - Musculoskeletal stiffness [Unknown]
  - Screaming [Unknown]
  - Somnolence [Unknown]
  - Decreased appetite [Unknown]

NARRATIVE: CASE EVENT DATE: 20241101
